FAERS Safety Report 16988855 (Version 1)
Quarter: 2019Q4

REPORT INFORMATION
  Report Type: Report from Study
  Country: US (occurrence: US)
  Receive Date: 20191104
  Receipt Date: 20191104
  Transmission Date: 20200122
  Serious: Yes (Hospitalization)
  Sender: FDA-Public Use
  Company Number: NVSC2019US022175

PATIENT
  Sex: Male

DRUGS (1)
  1. ENTRESTO [Suspect]
     Active Substance: SACUBITRIL\VALSARTAN
     Indication: PRODUCT USED FOR UNKNOWN INDICATION
     Dosage: UNK
     Route: 048

REACTIONS (7)
  - Heart rate abnormal [Unknown]
  - Gait inability [Unknown]
  - Chest pain [Unknown]
  - Cardiac disorder [Unknown]
  - Nipple pain [Unknown]
  - Peripheral swelling [Unknown]
  - Dyspnoea [Unknown]
